FAERS Safety Report 6022840-8 (Version None)
Quarter: 2008Q4

REPORT INFORMATION
  Report Type: 
  Country: None (occurrence: None)
  Receive Date: 20081230
  Receipt Date: 20080721
  Transmission Date: 20090506
  Serious: No
  Sender: FDA-Public Use
  Company Number: US-ABBOTT-08P-163-0460999-00

PATIENT
  Sex: Female

DRUGS (2)
  1. OMNICEF [Suspect]
     Indication: INFECTION
  2. FLUOXETINE [Concomitant]
     Indication: DEPRESSION
     Dates: start: 19980101

REACTIONS (2)
  - RASH [None]
  - RASH ERYTHEMATOUS [None]
